FAERS Safety Report 8465673-5 (Version None)
Quarter: 2012Q2

REPORT INFORMATION
  Report Type: 
  Country: None (occurrence: None)
  Receive Date: 20120626
  Receipt Date: 20120622
  Transmission Date: 20120825
  Serious: Yes (Life-Threatening)
  Sender: FDA-Public Use
  Company Number: US-ASTRAZENECA-2012SE42402

PATIENT
  Age: 10540 Day
  Sex: Female
  Weight: 63.5 kg

DRUGS (2)
  1. SEROQUEL [Suspect]
     Indication: PSYCHOTIC DISORDER
     Dosage: 50 MG BID AND 300 MG AT NIGHT
     Route: 048
  2. ZOLOFT [Concomitant]
     Indication: DEPRESSION

REACTIONS (1)
  - SUICIDE ATTEMPT [None]
